FAERS Safety Report 8950073 (Version 1)
Quarter: 2012Q4

REPORT INFORMATION
  Report Type: 
  Country: US (occurrence: US)
  Receive Date: 20121205
  Receipt Date: 20121205
  Transmission Date: 20130627
  Serious: Yes (Other)
  Sender: FDA-Public Use
  Company Number: US-ASTELLAS-2012US010398

PATIENT
  Age: 81 Year
  Sex: Female

DRUGS (4)
  1. TARCEVA [Suspect]
     Indication: LUNG NEOPLASM MALIGNANT
     Dosage: 150 mg, UID/QD
     Route: 048
     Dates: start: 20120924, end: 20121005
  2. TARCEVA [Suspect]
     Dosage: UNK
     Route: 048
  3. DIGOXIN [Concomitant]
     Indication: CARDIAC FAILURE CONGESTIVE
     Dosage: 0.25 DF, Unknown/D
     Route: 048
  4. TOPROL [Concomitant]
     Indication: HYPERTENSION
     Dosage: 100 DF, Unknown/D
     Route: 048

REACTIONS (6)
  - Diarrhoea [Recovered/Resolved]
  - Cough [Recovered/Resolved]
  - Dysphagia [Unknown]
  - Dysphagia [Unknown]
  - Drug intolerance [Unknown]
  - Adverse reaction [Unknown]
